FAERS Safety Report 4668441-5 (Version None)
Quarter: 2005Q2

REPORT INFORMATION
  Report Type: 
  Country: None (occurrence: None)
  Receive Date: 20050519
  Receipt Date: 20050504
  Transmission Date: 20051028
  Serious: Yes (Death, Other)
  Sender: FDA-Public Use
  Company Number: A-US2004-07274

PATIENT
  Age: 24 Year
  Sex: Female

DRUGS (1)
  1. TRACLEER [Suspect]
     Indication: PULMONARY HYPERTENSION
     Dosage: ORAL
     Route: 048

REACTIONS (5)
  - ABORTION INDUCED [None]
  - DRUG EXPOSURE DURING PREGNANCY [None]
  - PREGNANCY [None]
  - SURGICAL PROCEDURE REPEATED [None]
  - TREATMENT NONCOMPLIANCE [None]
